FAERS Safety Report 17293410 (Version 1)
Quarter: 2020Q1

REPORT INFORMATION
  Report Type: Spontaneous
  Country: GB (occurrence: GB)
  Receive Date: 20200121
  Receipt Date: 20200121
  Transmission Date: 20200409
  Serious: Yes (Disabling)
  Sender: FDA-Public Use
  Company Number: GB-TEVA-2020-GB-1169999

PATIENT
  Age: 18 Year
  Sex: Female
  Weight: 47 kg

DRUGS (4)
  1. PROPRANOLOL [Concomitant]
     Active Substance: PROPRANOLOL HYDROCHLORIDE
     Dosage: 2-3 TIMES A DAY
     Dates: start: 20191015, end: 20191112
  2. MIRTAZAPINE. [Suspect]
     Active Substance: MIRTAZAPINE
     Dosage: 15 MILLIGRAM
     Dates: start: 20191021
  3. CITALOPRAM [Concomitant]
     Active Substance: CITALOPRAM HYDROBROMIDE
     Dosage: 1 DOSAGE FORM
     Dates: start: 20191202
  4. OXAZEPAM. [Concomitant]
     Active Substance: OXAZEPAM
     Dosage: 1 DOSAGE FORMS DAILY; NIGHT TIME
     Dates: start: 20191202, end: 20191209

REACTIONS (1)
  - Hypoaesthesia oral [Recovering/Resolving]

NARRATIVE: CASE EVENT DATE: 20191211
